FAERS Safety Report 7302790-7 (Version None)
Quarter: 2011Q1

REPORT INFORMATION
  Report Type: 
  Country: None (occurrence: None)
  Receive Date: 20110218
  Receipt Date: 20110210
  Transmission Date: 20110831
  Serious: Yes (Hospitalization, Other)
  Sender: FDA-Public Use
  Company Number: US-WATSON-2011-01796

PATIENT
  Age: 34 Year

DRUGS (2)
  1. METRONIDAZOLE [Suspect]
     Indication: BACTEROIDES TEST POSITIVE
     Dosage: 66 G OVER 55 DAYS
     Route: 065
  2. METRONIDAZOLE [Suspect]
     Indication: MENINGITIS

REACTIONS (9)
  - GAIT DISTURBANCE [None]
  - DISORIENTATION [None]
  - ENCEPHALOPATHY [None]
  - NUCLEAR MAGNETIC RESONANCE IMAGING BRAIN ABNORMAL [None]
  - PARAESTHESIA [None]
  - HAEMANGIOMA [None]
  - NEUROPATHY PERIPHERAL [None]
  - VOMITING [None]
  - SPEECH DISORDER [None]
